FAERS Safety Report 24259655 (Version 1)
Quarter: 2024Q3

REPORT INFORMATION
  Report Type: Spontaneous
  Country: US (occurrence: US)
  Receive Date: 20240828
  Receipt Date: 20240828
  Transmission Date: 20241016
  Serious: No
  Sender: Haleon PLC
  Company Number: US-HALEON-2193990

PATIENT
  Sex: Female
  Weight: 166 kg

DRUGS (6)
  1. ADVIL [Suspect]
     Active Substance: IBUPROFEN\IBUPROFEN SODIUM
     Indication: Product used for unknown indication
  2. COLLAGEN [Suspect]
     Active Substance: COLLAGEN
     Indication: Product used for unknown indication
  3. HERBALS\TURMERIC [Suspect]
     Active Substance: HERBALS\TURMERIC
     Indication: Product used for unknown indication
  4. TYLENOL [Suspect]
     Active Substance: ACETAMINOPHEN
     Indication: Product used for unknown indication
  5. ZEJULA [Suspect]
     Active Substance: NIRAPARIB
     Indication: Ovarian cancer
     Dosage: EXPDATE:20270228
     Route: 048
     Dates: start: 20240817
  6. ZEJULA [Suspect]
     Active Substance: NIRAPARIB
     Indication: Metastases to lymph nodes

REACTIONS (3)
  - Anxiety [Recovering/Resolving]
  - Sleep disorder [Recovering/Resolving]
  - Nausea [Recovering/Resolving]
